FAERS Safety Report 6618488-4 (Version None)
Quarter: 2010Q1

REPORT INFORMATION
  Report Type: 
  Country: None (occurrence: None)
  Receive Date: 20100308
  Receipt Date: 20100222
  Transmission Date: 20100710
  Serious: Yes (Hospitalization)
  Sender: FDA-Public Use
  Company Number: FR-CELGENEUS-056-C5013-09121750

PATIENT
  Sex: Male
  Weight: 66 kg

DRUGS (7)
  1. CC-5013 [Suspect]
     Indication: MULTIPLE MYELOMA
     Route: 048
     Dates: start: 20091210, end: 20091230
  2. CC-5013 [Suspect]
     Route: 048
     Dates: start: 20091015
  3. DEXAMETHASONE [Suspect]
     Indication: MULTIPLE MYELOMA
     Route: 065
     Dates: start: 20091210, end: 20091224
  4. DEXAMETHASONE [Suspect]
     Route: 065
     Dates: start: 20091015
  5. DEXAMETHASONE [Suspect]
     Route: 065
     Dates: start: 20100204
  6. KARDEGIC [Concomitant]
     Indication: PROPHYLAXIS
     Route: 048
     Dates: start: 20091015
  7. TENORMIN [Concomitant]
     Route: 048
     Dates: start: 20091121

REACTIONS (2)
  - ANAEMIA [None]
  - PNEUMONIA PNEUMOCOCCAL [None]
